FAERS Safety Report 4768217-4 (Version None)
Quarter: 2005Q3

REPORT INFORMATION
  Report Type: 
  Country: None (occurrence: None)
  Receive Date: 20050913
  Receipt Date: 20050829
  Transmission Date: 20060218
  Serious: Yes (Death)
  Sender: FDA-Public Use
  Company Number: 2005S1008496

PATIENT
  Age: 65 Year
  Sex: Male

DRUGS (9)
  1. CLOZAPINE [Suspect]
     Dosage: 150 MG; BID; PO
     Route: 048
  2. DIGOXIN [Concomitant]
  3. LANSOPRAZOLE [Concomitant]
  4. DOCUSATE CALCIUM [Concomitant]
  5. LITHIUM CARBONATE [Concomitant]
  6. IPRATROPIUM BROMIDE/SALBUTAMOL SULFATE [Concomitant]
  7. HYOSCINE BUTYLBROMIDE/METAMIZOLE SODIUM MONOHYDRATE [Concomitant]
  8. VENLAFAXINE HCL [Concomitant]
  9. DOXAZOSIN MESYLATE [Concomitant]

REACTIONS (1)
  - SEPSIS [None]
